FAERS Safety Report 11196061 (Version 1)
Quarter: 2015Q2

REPORT INFORMATION
  Report Type: Spontaneous
  Country: US (occurrence: US)
  Receive Date: 20150617
  Receipt Date: 20150617
  Transmission Date: 20150821
  Serious: Yes (Other)
  Sender: FDA-Public Use
  Company Number: US-JNJFOC-20150608092

PATIENT
  Age: 31 Year
  Sex: Female

DRUGS (2)
  1. RIFAMPIN. [Suspect]
     Active Substance: RIFAMPIN
     Indication: PRURITUS
     Route: 065
  2. INFLIXIMAB, RECOMBINANT [Suspect]
     Active Substance: INFLIXIMAB
     Indication: COLITIS ULCERATIVE
     Route: 042

REACTIONS (1)
  - Lupus-like syndrome [Recovering/Resolving]
